FAERS Safety Report 6360886-0 (Version None)
Quarter: 2009Q3

REPORT INFORMATION
  Report Type: 
  Country: None (occurrence: None)
  Receive Date: 20090915
  Receipt Date: 20090915
  Transmission Date: 20100115
  Serious: Yes (Other)
  Sender: FDA-Public Use
  Company Number: None

PATIENT
  Sex: Male
  Weight: 57.1532 kg

DRUGS (1)
  1. RISPERDONE [Suspect]
     Indication: AUTISM
     Dosage: 0.5 MG TID
     Dates: start: 20090301

REACTIONS (2)
  - ABNORMAL BEHAVIOUR [None]
  - IRRITABILITY [None]
